FAERS Safety Report 8788242 (Version 1)
Quarter: 2012Q4

REPORT INFORMATION
  Report Type: 
  Country: US (occurrence: US)
  Receive Date: 20120914
  Receipt Date: 20120914
  Transmission Date: 20130627
  Serious: No
  Sender: FDA-Public Use
  Company Number: US-VERTEX PHARMACEUTICAL INC.-AE-2012-000673

PATIENT

DRUGS (8)
  1. INCIVEK [Suspect]
     Indication: HEPATITIS C
     Route: 048
     Dates: start: 20120105, end: 201204
  2. PEGASYS [Concomitant]
     Indication: HEPATITIS C
     Route: 058
     Dates: start: 20120105, end: 201204
  3. PEGASYS [Concomitant]
     Route: 058
     Dates: start: 201203
  4. RIBAPACK [Concomitant]
     Indication: HEPATITIS C
     Route: 048
     Dates: start: 20120105, end: 201204
  5. KLONIPIN [Concomitant]
     Indication: ANXIETY
  6. KLONIPIN [Concomitant]
     Indication: RESTLESS LEGS SYNDROME
  7. TRAZODONE [Concomitant]
     Indication: INSOMNIA
  8. CLONAZEPAM [Concomitant]

REACTIONS (16)
  - White blood cell count decreased [Not Recovered/Not Resolved]
  - Dyspnoea [Not Recovered/Not Resolved]
  - Heart rate increased [Not Recovered/Not Resolved]
  - Arthralgia [Not Recovered/Not Resolved]
  - Influenza like illness [Not Recovered/Not Resolved]
  - Paraesthesia [Not Recovered/Not Resolved]
  - Night sweats [Not Recovered/Not Resolved]
  - Chills [Not Recovered/Not Resolved]
  - Confusional state [Not Recovered/Not Resolved]
  - Anxiety [Not Recovered/Not Resolved]
  - Anaemia [Recovered/Resolved]
  - Platelet count decreased [Not Recovered/Not Resolved]
  - Fatigue [Not Recovered/Not Resolved]
  - Rash generalised [Recovered/Resolved]
  - Rash maculo-papular [Recovered/Resolved]
  - Papule [Not Recovered/Not Resolved]
